FAERS Safety Report 12884070 (Version 8)
Quarter: 2017Q3

REPORT INFORMATION
  Report Type: Spontaneous
  Country: US (occurrence: US)
  Receive Date: 20161026
  Receipt Date: 20170809
  Transmission Date: 20171127
  Serious: Yes (Hospitalization, Other)
  Sender: FDA-Public Use
  Company Number: US-PFIZER INC-2016497571

PATIENT
  Age: 54 Year
  Sex: Female
  Weight: 63.49 kg

DRUGS (3)
  1. REVATIO [Suspect]
     Active Substance: SILDENAFIL CITRATE
     Dosage: 80 MG, 3X/DAY(4 TABLETS THREE TIMES A DAY)
     Route: 048
     Dates: start: 201608
  2. REVATIO [Suspect]
     Active Substance: SILDENAFIL CITRATE
     Indication: PULMONARY HYPERTENSION
     Dosage: 80 MG, 3X/DAY (4 PILLS EVERY 8HOURS, 12 DAILY)
     Route: 048
     Dates: start: 2004
  3. REVATIO [Suspect]
     Active Substance: SILDENAFIL CITRATE
     Dosage: 240 MG, DAILY (12 TABLETS BY MOUTH DAILY
     Route: 048

REACTIONS (8)
  - Sciatica [Not Recovered/Not Resolved]
  - Back pain [Not Recovered/Not Resolved]
  - Product use issue [Not Recovered/Not Resolved]
  - Loss of personal independence in daily activities [Recovering/Resolving]
  - Malaise [Unknown]
  - Scoliosis [Unknown]
  - Lower limb fracture [Recovering/Resolving]
  - Road traffic accident [Recovering/Resolving]

NARRATIVE: CASE EVENT DATE: 2004
